FAERS Safety Report 24139142 (Version 2)
Quarter: 2024Q3

REPORT INFORMATION
  Report Type: Spontaneous
  Country: US (occurrence: US)
  Receive Date: 20240726
  Receipt Date: 20240902
  Transmission Date: 20241016
  Serious: Yes (Other)
  Sender: CSL BEHRING
  Company Number: US-BEH-2024175860

PATIENT
  Age: 56 Year
  Sex: Female

DRUGS (61)
  1. HIZENTRA [Suspect]
     Active Substance: HUMAN IMMUNOGLOBULIN G
     Indication: Immunodeficiency common variable
     Dosage: 30 G, QOW
     Route: 058
     Dates: start: 20211210
  2. DULOXETINE [Suspect]
     Active Substance: DULOXETINE
     Route: 065
  3. NURTEC ODT [Suspect]
     Active Substance: RIMEGEPANT SULFATE
     Route: 065
  4. AMOXICILLIN\CLAVULANATE POTASSIUM [Concomitant]
     Active Substance: AMOXICILLIN\CLAVULANATE POTASSIUM
  5. AZELASTINE [Concomitant]
     Active Substance: AZELASTINE\AZELASTINE HYDROCHLORIDE
  6. AZITHROMYCIN [Concomitant]
     Active Substance: AZITHROMYCIN
  7. BOTOX [Concomitant]
     Active Substance: ONABOTULINUMTOXINA
  8. CEFUROXIME [Concomitant]
     Active Substance: CEFUROXIME
  9. Ciprofloxacin 0,3% and dexamethasone 0,1% [Concomitant]
  10. CIPROFLOXACIN [Concomitant]
     Active Substance: CIPROFLOXACIN
  11. CLARITHROMYCIN [Concomitant]
     Active Substance: CLARITHROMYCIN
  12. CLOBETASOL [Concomitant]
     Active Substance: CLOBETASOL
  13. CLONAZEPAM [Concomitant]
     Active Substance: CLONAZEPAM
  14. CYCLOBENZAPRINE [Concomitant]
     Active Substance: CYCLOBENZAPRINE
  15. CYCLOBENZAPRINE [Concomitant]
     Active Substance: CYCLOBENZAPRINE
  16. DESONIDE [Concomitant]
     Active Substance: DESONIDE
  17. DEXAMETHASONE [Concomitant]
     Active Substance: DEXAMETHASONE
  18. DIAZEPAM [Concomitant]
     Active Substance: DIAZEPAM
  19. EPINEPHRINE [Concomitant]
     Active Substance: EPINEPHRINE
  20. FLUCONAZOLE [Concomitant]
     Active Substance: FLUCONAZOLE
  21. FLUOCINONIDE [Concomitant]
     Active Substance: FLUOCINONIDE
  22. FUROSEMIDE [Concomitant]
     Active Substance: FUROSEMIDE
  23. A-HYDROCORT [Concomitant]
     Active Substance: HYDROCORTISONE SODIUM SUCCINATE
  24. HYQVIA [Concomitant]
     Active Substance: HUMAN IMMUNOGLOBULIN G\HYALURONIDASE (HUMAN RECOMBINANT)
  25. LEVOTHYROXINE [Concomitant]
     Active Substance: LEVOTHYROXINE\LEVOTHYROXINE SODIUM
  26. LIDOCAINE\PRILOCAINE [Concomitant]
     Active Substance: LIDOCAINE\PRILOCAINE
  27. LOSARTAN [Concomitant]
     Active Substance: LOSARTAN\LOSARTAN POTASSIUM
  28. LOSARTAN [Concomitant]
     Active Substance: LOSARTAN\LOSARTAN POTASSIUM
  29. LOTEMAX [Concomitant]
     Active Substance: LOTEPREDNOL ETABONATE
  30. METHYLPREDNISOLONE [Concomitant]
     Active Substance: METHYLPREDNISOLONE
  31. METOPROLOL SUCCINATE [Concomitant]
     Active Substance: METOPROLOL SUCCINATE
  32. MINOXIDIL [Concomitant]
     Active Substance: MINOXIDIL
  33. NORTRIPTYLINE [Concomitant]
     Active Substance: NORTRIPTYLINE
  34. NORTRIPTYLINE [Concomitant]
     Active Substance: NORTRIPTYLINE
  35. NORTRIPTYLINE [Concomitant]
     Active Substance: NORTRIPTYLINE
  36. NP THYROID [Concomitant]
     Active Substance: LEVOTHYROXINE\LIOTHYRONINE
  37. NP THYROID [Concomitant]
     Active Substance: LEVOTHYROXINE\LIOTHYRONINE
  38. NP THYROID [Concomitant]
     Active Substance: LEVOTHYROXINE\LIOTHYRONINE
  39. OFLOXACIN [Concomitant]
     Active Substance: OFLOXACIN
  40. ONDANSETRON [Concomitant]
     Active Substance: ONDANSETRON
  41. PANTOPRAZOLE [Concomitant]
     Active Substance: PANTOPRAZOLE
  42. Penicilin v kali [Concomitant]
  43. PIMECROLIMUS [Concomitant]
     Active Substance: PIMECROLIMUS
  44. POTASSIUM CHLORIDE [Concomitant]
     Active Substance: POTASSIUM CHLORIDE
  45. PROMETHAZINE [Concomitant]
     Active Substance: PROMETHAZINE HYDROCHLORIDE
  46. PROMETHAZINE [Concomitant]
     Active Substance: PROMETHAZINE HYDROCHLORIDE
  47. RESTASIS [Concomitant]
     Active Substance: CYCLOSPORINE
  48. RIZATRIPTAN [Concomitant]
     Active Substance: RIZATRIPTAN
  49. TACROLIMUS [Concomitant]
     Active Substance: TACROLIMUS
  50. TRETINOIN [Concomitant]
     Active Substance: TRETINOIN
  51. TRETINOIN [Concomitant]
     Active Substance: TRETINOIN
  52. TRIAMTERENE AND HYDROCHLOROTHIAZIDE [Concomitant]
     Active Substance: HYDROCHLOROTHIAZIDE\TRIAMTERENE
  53. TRIAMTERENE AND HYDROCHLOROTHIAZIDE [Concomitant]
     Active Substance: HYDROCHLOROTHIAZIDE\TRIAMTERENE
  54. VENLAFAXINE [Concomitant]
     Active Substance: VENLAFAXINE HYDROCHLORIDE
  55. VERAPAMIL [Concomitant]
     Active Substance: VERAPAMIL HYDROCHLORIDE
  56. VERAPAMIL [Concomitant]
     Active Substance: VERAPAMIL HYDROCHLORIDE
  57. VITAMIN D [Concomitant]
     Active Substance: VITAMIN D NOS
  58. XELJANZ [Concomitant]
     Active Substance: TOFACITINIB CITRATE
  59. XELJANZ XR [Concomitant]
     Active Substance: TOFACITINIB CITRATE
  60. DAVESOMERAN\ELASOMERAN [Concomitant]
     Active Substance: DAVESOMERAN\ELASOMERAN
  61. FLUCELVAX QUADRIVALENT 2017/2018 (INFLUENZA A VIRUS A/DARWIN/11/2021 ( [Concomitant]
     Active Substance: INFLUENZA A VIRUS A/DARWIN/11/2021 (H3N2) ANTIGEN (MDCK CELL DERIVED, PROPIOLACTONE INACTIVATED)\INF

REACTIONS (3)
  - Drug ineffective [Unknown]
  - Discomfort [Unknown]
  - Tinnitus [Not Recovered/Not Resolved]
